FAERS Safety Report 4730447-5 (Version None)
Quarter: 2005Q3

REPORT INFORMATION
  Report Type: 
  Country: None (occurrence: None)
  Receive Date: 20050725
  Receipt Date: 20050413
  Transmission Date: 20060218
  Serious: No
  Sender: FDA-Public Use
  Company Number: USA050495674

PATIENT
  Age: 15 Year
  Sex: Male

DRUGS (1)
  1. STRATTERA [Suspect]
     Dosage: 120 MG
     Dates: start: 20030501, end: 20040501

REACTIONS (2)
  - PRESCRIBED OVERDOSE [None]
  - SUICIDAL IDEATION [None]
